FAERS Safety Report 7587523-1 (Version None)
Quarter: 2011Q3

REPORT INFORMATION
  Report Type: 
  Country: None (occurrence: None)
  Receive Date: 20110704
  Receipt Date: 20110620
  Transmission Date: 20111222
  Serious: Yes (Hospitalization, Other)
  Sender: FDA-Public Use
  Company Number: ES-ELI_LILLY_AND_COMPANY-ES201106000034

PATIENT
  Sex: Female
  Weight: 75 kg

DRUGS (1)
  1. FORTEO [Suspect]
     Indication: OSTEOPOROSIS
     Dosage: 20 UG, QD
     Route: 058
     Dates: start: 20101203

REACTIONS (6)
  - ARTHRALGIA [None]
  - SPINAL OPERATION [None]
  - JOINT INJURY [None]
  - NECROSIS [None]
  - FALL [None]
  - TIBIA FRACTURE [None]
